FAERS Safety Report 4359144-5 (Version None)
Quarter: 2004Q2

REPORT INFORMATION
  Report Type: 
  Country: None (occurrence: None)
  Receive Date: 20040512
  Receipt Date: 20040504
  Transmission Date: 20050107
  Serious: Yes (Hospitalization)
  Sender: FDA-Public Use
  Company Number: GB-JNJFOC-20040500410

PATIENT
  Age: 54 Year
  Sex: Male

DRUGS (8)
  1. REMICADE (INFLIXIMAB, RECOMBINANT) LYOPHILIZED POWDER [Suspect]
     Indication: RHEUMATOID ARTHRITIS
     Dosage: INTRAVENOUS
     Route: 042
     Dates: start: 20030725
  2. METHOTREXATE [Concomitant]
  3. DICLOFENAC (DICLOFENAC) [Concomitant]
  4. SULFASALAZINE [Concomitant]
  5. PREDNISOLONE [Concomitant]
  6. BENDROFLUAZIDE (BENDROFLUMETHIAZIDE) [Concomitant]
  7. FOLIC ACID [Concomitant]
  8. CORACTEN (NIFEDIPINE) [Concomitant]

REACTIONS (1)
  - MOUTH ULCERATION [None]
